FAERS Safety Report 7001468-7 (Version None)
Quarter: 2010Q3

REPORT INFORMATION
  Report Type: 
  Country: None (occurrence: None)
  Receive Date: 20100920
  Receipt Date: 20100701
  Transmission Date: 20110219
  Serious: No
  Sender: FDA-Public Use
  Company Number: US-ASTRAZENECA-2010SE30882

PATIENT
  Age: 72 Year
  Sex: Female

DRUGS (9)
  1. SEROQUEL [Suspect]
     Indication: DEMENTIA
     Route: 048
     Dates: start: 20080101
  2. SEROQUEL [Suspect]
     Route: 048
  3. SEROQUEL [Suspect]
     Route: 048
  4. METOPROLOL [Concomitant]
  5. LIPITOR [Concomitant]
  6. DIGOXIN [Concomitant]
  7. LEXAPRO [Concomitant]
  8. COUMADIN [Concomitant]
  9. NAMENDA [Concomitant]

REACTIONS (2)
  - PSYCHOTIC DISORDER [None]
  - SOMNOLENCE [None]
